FAERS Safety Report 12567105 (Version 3)
Quarter: 2017Q2

REPORT INFORMATION
  Report Type: Spontaneous
  Country: US (occurrence: US)
  Receive Date: 20160718
  Receipt Date: 20170519
  Transmission Date: 20170830
  Serious: Yes (Death, Other)
  Sender: FDA-Public Use
  Company Number: US-PFIZER INC-2016340737

PATIENT
  Age: 59 Year
  Sex: Female
  Weight: 90.7 kg

DRUGS (7)
  1. DILAUDID [Interacting]
     Active Substance: HYDROMORPHONE HYDROCHLORIDE
     Indication: PAIN
  2. ATIVAN [Interacting]
     Active Substance: LORAZEPAM
     Indication: AGGRESSION
     Dosage: 2MG PER ML INJECTION IN COMBINATION WITH DILAUDID
     Route: 042
     Dates: start: 20150220
  3. ATIVAN [Interacting]
     Active Substance: LORAZEPAM
     Indication: PAIN
  4. HALDOL [Suspect]
     Active Substance: HALOPERIDOL
     Indication: SEDATION
     Dosage: 1ML OF 5 MG/ML INJECTION
  5. HYDROMORPHONE HYDROCHLORIDE. [Suspect]
     Active Substance: HYDROMORPHONE HYDROCHLORIDE
     Dosage: UNK  (1 MG PER 1 ML AMP )
     Route: 042
     Dates: start: 20150220
  6. DILAUDID [Interacting]
     Active Substance: HYDROMORPHONE HYDROCHLORIDE
     Indication: SLEEP DISORDER
     Dosage: IN COMBINATIN WITH ATIVAN
     Route: 042
     Dates: start: 20150220
  7. ATIVAN [Interacting]
     Active Substance: LORAZEPAM
     Indication: SLEEP DISORDER
     Dosage: UNK
     Route: 042
     Dates: start: 20150213

REACTIONS (6)
  - Drug interaction [Unknown]
  - Asphyxia [Fatal]
  - Respiratory failure [Fatal]
  - Sedation [Fatal]
  - Pneumonia [Unknown]
  - Product label issue [Unknown]

NARRATIVE: CASE EVENT DATE: 20150220
